FAERS Safety Report 19082469 (Version 2)
Quarter: 2021Q2

REPORT INFORMATION
  Report Type: Spontaneous
  Country: US (occurrence: US)
  Receive Date: 20210401
  Receipt Date: 20210623
  Transmission Date: 20210717
  Serious: No
  Sender: FDA-Public Use
  Company Number: US-GLENMARK PHARMACEUTICALS-2021GMK052422

PATIENT

DRUGS (3)
  1. ESTRADIOL VAGINAL INSERTS USP [Suspect]
     Active Substance: ESTRADIOL
     Indication: SKIN ATROPHY
     Dosage: 1 DOSAGE FORM, HS (ONE EVERY NIGHT FOR 14 NIGHTS AND THEN MOVE TO 2 TO 3 PER WEEK)
     Route: 065
     Dates: start: 202010
  2. ESTRADIOL VAGINAL INSERTS USP [Suspect]
     Active Substance: ESTRADIOL
     Indication: DYSPAREUNIA
     Dosage: (2 TO 3 TIMES PER WEEK)
     Route: 065
     Dates: start: 202011
  3. ESTRADIOL VAGINAL INSERTS USP [Suspect]
     Active Substance: ESTRADIOL
     Indication: COITAL BLEEDING
     Dosage: UNK (STARTED WITH NEW BATCH)
     Route: 065
     Dates: start: 202101, end: 20210210

REACTIONS (8)
  - Vaginal discharge [Recovered/Resolved]
  - Vulvovaginal pruritus [Recovered/Resolved]
  - Vulvovaginal mycotic infection [Recovered/Resolved]
  - Urine abnormality [Recovered/Resolved]
  - Vulvovaginal pain [Recovered/Resolved]
  - Drug ineffective [Unknown]
  - Product quality issue [Unknown]
  - Vulvovaginal burning sensation [Recovered/Resolved]

NARRATIVE: CASE EVENT DATE: 2020
